FAERS Safety Report 24971218 (Version 1)
Quarter: 2025Q1

REPORT INFORMATION
  Report Type: Spontaneous
  Country: US (occurrence: US)
  Receive Date: 20250214
  Receipt Date: 20250214
  Transmission Date: 20250408
  Serious: Yes (Other)
  Sender: Kenvue
  Company Number: US-KENVUE-20241107936

PATIENT
  Sex: Female

DRUGS (1)
  1. TYLENOL EXTRA STRENGTH [Suspect]
     Active Substance: ACETAMINOPHEN
     Indication: Musculoskeletal chest pain
     Dosage: 2 DOSAGE FORM, TWICE A DAY (2 IN MORNING AND 2 IN EVENING)
     Route: 065

REACTIONS (2)
  - Hallucination, visual [Unknown]
  - Inappropriate schedule of product administration [Unknown]
